FAERS Safety Report 19629263 (Version 1)
Quarter: 2021Q3

REPORT INFORMATION
  Report Type: Report from Study
  Country: US (occurrence: US)
  Receive Date: 20210729
  Receipt Date: 20210729
  Transmission Date: 20211014
  Serious: Yes (Other)
  Sender: FDA-Public Use
  Company Number: US-ASTELLAS-2021US027932

PATIENT
  Age: 68 Year
  Sex: Female

DRUGS (2)
  1. ASG?22CE [Suspect]
     Active Substance: ENFORTUMAB VEDOTIN
     Dosage: 1.0 MG/KG D 1, 8 EVERY 21 DAYS, CYCLIC
     Route: 042
  2. ASG?22CE [Suspect]
     Active Substance: ENFORTUMAB VEDOTIN
     Indication: TRANSITIONAL CELL CARCINOMA
     Dosage: 1.0 MG/KG DAYS 1,8,15 EVERY 28 DAYS (CYCLIC)
     Route: 042
     Dates: start: 20210112, end: 20210427

REACTIONS (5)
  - Neuropathy peripheral [Recovering/Resolving]
  - Neutropenia [Recovered/Resolved]
  - Decreased appetite [Unknown]
  - Diarrhoea [Unknown]
  - Off label use [Unknown]

NARRATIVE: CASE EVENT DATE: 20210112
